FAERS Safety Report 11872584 (Version 1)
Quarter: 2015Q4

REPORT INFORMATION
  Report Type: Report from Study
  Country: CA (occurrence: CA)
  Receive Date: 20151228
  Receipt Date: 20151228
  Transmission Date: 20160305
  Serious: Yes (Hospitalization, Other)
  Sender: FDA-Public Use
  Company Number: CA-JNJFOC-20151220443

PATIENT
  Age: 55 Year
  Sex: Female
  Weight: 81.5 kg

DRUGS (2)
  1. METHOTREXATE [Concomitant]
     Active Substance: METHOTREXATE
     Route: 065
  2. REMICADE [Suspect]
     Active Substance: INFLIXIMAB
     Indication: RHEUMATOID ARTHRITIS
     Route: 042
     Dates: start: 20120116

REACTIONS (5)
  - Mesenteric artery thrombosis [Unknown]
  - Intestinal resection [Unknown]
  - Sepsis [Unknown]
  - Pneumoperitoneum [Unknown]
  - Pneumatosis [Unknown]

NARRATIVE: CASE EVENT DATE: 201512
